FAERS Safety Report 16365191 (Version 3)
Quarter: 2019Q3

REPORT INFORMATION
  Report Type: Report from Study
  Country: UG (occurrence: UG)
  Receive Date: 20190529
  Receipt Date: 20190906
  Transmission Date: 20191004
  Serious: Yes (Congenital Anomaly)
  Sender: FDA-Public Use
  Company Number: UG-VIIV HEALTHCARE LIMITED-UG2018GSK159444

PATIENT
  Sex: Female

DRUGS (9)
  1. COTRIMOXAZOLE [Concomitant]
     Active Substance: SULFAMETHOXAZOLE\TRIMETHOPRIM
     Dosage: 120 MG, QD
     Dates: start: 20180418, end: 20190213
  2. ORAL REHYDRATION SALT [Concomitant]
     Dosage: UNK (VARIES)
     Dates: start: 20181217
  3. VITAMIN A [Concomitant]
     Active Substance: VITAMIN A
     Dosage: 100000 IU, QD
     Dates: start: 20190214, end: 20190214
  4. DOLUTEGRAVIR [Suspect]
     Active Substance: DOLUTEGRAVIR
     Indication: HIV INFECTION
     Dosage: 50 MG, QD
     Route: 064
     Dates: start: 20180215
  5. COTRIMOXAZOLE [Concomitant]
     Active Substance: SULFAMETHOXAZOLE\TRIMETHOPRIM
     Dosage: 240 MG, QD
     Dates: start: 20190214, end: 20190510
  6. ZINC SULFATE. [Concomitant]
     Active Substance: ZINC SULFATE
     Dosage: 20 MG, QD
     Dates: start: 20181217, end: 20181227
  7. MEBENDAZOLE. [Concomitant]
     Active Substance: MEBENDAZOLE
     Dosage: 250 MG, QD
     Dates: start: 20190214, end: 20190214
  8. FERROUS SULPHATE AND FOLIC ACID [Concomitant]
     Active Substance: FERROUS SULFATE\FOLIC ACID
     Route: 064
  9. NEVIRAPINE SYRUP [Concomitant]
     Dosage: 1.5 ML, QD
     Dates: start: 20180308, end: 20180419

REACTIONS (1)
  - Umbilical hernia [Not Recovered/Not Resolved]

NARRATIVE: CASE EVENT DATE: 20180308
